FAERS Safety Report 22196376 (Version 3)
Quarter: 2023Q2

REPORT INFORMATION
  Report Type: Report from Study
  Country: SA (occurrence: SA)
  Receive Date: 20230411
  Receipt Date: 20230617
  Transmission Date: 20230721
  Serious: Yes (Other)
  Sender: FDA-Public Use
  Company Number: SA-002147023-NVSC2023SA082121

PATIENT
  Age: 65 Year
  Sex: Male

DRUGS (2)
  1. GLIVEC [Suspect]
     Active Substance: IMATINIB MESYLATE
     Indication: Chronic myeloid leukaemia
     Dosage: 400 MG, QD (STARTED AT 10 MONTHS AND STOPPED AT 12 MONTHS)
     Route: 048
     Dates: start: 20220301, end: 20230301
  2. TASIGNA [Suspect]
     Active Substance: NILOTINIB
     Indication: Chronic myeloid leukaemia
     Dosage: UNK, QD (STARTED AT 10 MONTHS AND STOPPED AT 12 MONTHS)
     Route: 048
     Dates: start: 20230301, end: 20230501

REACTIONS (1)
  - Cardiovascular disorder [Recovered/Resolved]

NARRATIVE: CASE EVENT DATE: 20220901
